FAERS Safety Report 18254174 (Version 3)
Quarter: 2023Q2

REPORT INFORMATION
  Report Type: Spontaneous
  Country: US (occurrence: US)
  Receive Date: 20200910
  Receipt Date: 20230404
  Transmission Date: 20230721
  Serious: Yes (Other)
  Sender: FDA-Public Use
  Company Number: US-GILEAD-2020-0494036

PATIENT
  Sex: Male
  Weight: 129.25 kg

DRUGS (17)
  1. ATRIPLA [Suspect]
     Active Substance: EFAVIRENZ\EMTRICITABINE\TENOFOVIR DISOPROXIL FUMARATE
     Indication: HIV infection
     Dosage: UNK
     Route: 048
     Dates: start: 2009
  2. ATRIPLA [Suspect]
     Active Substance: EFAVIRENZ\EMTRICITABINE\TENOFOVIR DISOPROXIL FUMARATE
     Dosage: UNK
     Route: 048
     Dates: start: 201010, end: 201704
  3. ATRIPLA [Suspect]
     Active Substance: EFAVIRENZ\EMTRICITABINE\TENOFOVIR DISOPROXIL FUMARATE
     Dosage: UNK
     Route: 048
     Dates: start: 201204, end: 201704
  4. BIKTARVY [Concomitant]
     Active Substance: BICTEGRAVIR SODIUM\EMTRICITABINE\TENOFOVIR ALAFENAMIDE FUMARATE
  5. GENVOYA [Concomitant]
     Active Substance: COBICISTAT\ELVITEGRAVIR\EMTRICITABINE\TENOFOVIR ALAFENAMIDE FUMARATE
  6. FOLIC ACID [Concomitant]
     Active Substance: FOLIC ACID
  7. LAMOTRIGINE [Concomitant]
     Active Substance: LAMOTRIGINE
  8. METOPROLOL [Concomitant]
     Active Substance: METOPROLOL
  9. RISPERIDONE [Concomitant]
     Active Substance: RISPERIDONE
  10. ATENOLOL [Concomitant]
     Active Substance: ATENOLOL
  11. FLONASE ALLERGY RELIEF [Concomitant]
     Active Substance: FLUTICASONE PROPIONATE
  12. CRESTOR [Concomitant]
     Active Substance: ROSUVASTATIN CALCIUM
  13. ALBUTEROL SULFATE [Concomitant]
     Active Substance: ALBUTEROL SULFATE
  14. FUROSEMIDE [Concomitant]
     Active Substance: FUROSEMIDE
  15. PREVACID [Concomitant]
     Active Substance: LANSOPRAZOLE
  16. MONTELUKAST [Concomitant]
     Active Substance: MONTELUKAST SODIUM
  17. CARVEDILOL [Concomitant]
     Active Substance: CARVEDILOL

REACTIONS (9)
  - Multiple fractures [Unknown]
  - Bone density decreased [Not Recovered/Not Resolved]
  - Pain [Unknown]
  - Emotional distress [Unknown]
  - Anxiety [Not Recovered/Not Resolved]
  - Anhedonia [Unknown]
  - Depression [Not Recovered/Not Resolved]
  - Osteopenia [Not Recovered/Not Resolved]
  - Bone demineralisation [Unknown]

NARRATIVE: CASE EVENT DATE: 20100101
